FAERS Safety Report 6107917-0 (Version None)
Quarter: 2009Q1

REPORT INFORMATION
  Report Type: 
  Country: None (occurrence: None)
  Receive Date: 20090309
  Receipt Date: 20090303
  Transmission Date: 20090719
  Serious: Yes (Hospitalization)
  Sender: FDA-Public Use
  Company Number: FR-MERCK-0903FRA00017

PATIENT
  Age: 67 Year
  Sex: Female

DRUGS (15)
  1. NOROXIN [Suspect]
     Indication: URINARY TRACT INFECTION
     Route: 048
     Dates: start: 20081015, end: 20081020
  2. COLCHICINE [Suspect]
     Indication: HYPERURICAEMIA
     Route: 048
     Dates: start: 20081016, end: 20081020
  3. BISOPROLOL [Suspect]
     Indication: HYPERTENSION
     Route: 048
     Dates: end: 20081016
  4. DILTIAZEM HYDROCHLORIDE [Concomitant]
     Route: 048
  5. SPIRONOLACTONE [Suspect]
     Indication: HYPERTENSION
     Route: 048
     Dates: start: 20081016, end: 20081020
  6. HYDROCHLOROTHIAZIDE AND RAMIPRIL [Suspect]
     Indication: HYPERTENSION
     Route: 048
     Dates: end: 20081019
  7. FUROSEMIDE [Suspect]
     Indication: HYPERTENSION
     Route: 048
     Dates: start: 20081016, end: 20081017
  8. POTASSIUM CHLORIDE [Suspect]
     Route: 048
     Dates: start: 20081016, end: 20081020
  9. FLUINDIONE [Concomitant]
     Route: 048
  10. OMEPRAZOLE [Concomitant]
     Route: 048
  11. LORAZEPAM [Concomitant]
     Route: 048
  12. LORMETAZEPAM [Concomitant]
     Route: 048
  13. IBANDRONATE SODIUM [Concomitant]
     Indication: OSTEOPOROSIS
     Route: 048
  14. TIOTROPIUM BROMIDE [Concomitant]
     Route: 065
  15. BUDESONIDE AND FORMOTEROL FUMARATE [Concomitant]

REACTIONS (2)
  - HYPERKALAEMIA [None]
  - RENAL FAILURE CHRONIC [None]
